FAERS Safety Report 4332038-7 (Version None)
Quarter: 2004Q1

REPORT INFORMATION
  Report Type: 
  Country: None (occurrence: None)
  Receive Date: 20040330
  Receipt Date: 20040311
  Transmission Date: 20041129
  Serious: Yes (Other)
  Sender: FDA-Public Use
  Company Number: B0326480A

PATIENT
  Age: 48 Year
  Sex: Male

DRUGS (5)
  1. BECONASE AQ [Suspect]
     Indication: CHRONIC SINUSITIS
     Dosage: 2 SPRAY/AS REQUIRED/INTRANASAL
  2. TRIAMCINOLONE ACETONIDE [Suspect]
     Indication: CHRONIC SINUSITIS
     Dosage: 220 UG/FOUR TIMES PER DAY/INTRAN
  3. DEXAMETH [Suspect]
     Indication: CHRONIC SINUSITIS
     Dosage: 2 SPRAY/FOUR TIMES A DAY/INTRAN
  4. LOSARTAN POTASSIUM [Concomitant]
  5. AMITRIPTYLINE HCL [Concomitant]

REACTIONS (10)
  - ABDOMINAL PAIN [None]
  - ACTIVITIES OF DAILY LIVING IMPAIRED [None]
  - ARTHRALGIA [None]
  - DRUG EFFECT DECREASED [None]
  - GROIN PAIN [None]
  - JOINT RANGE OF MOTION DECREASED [None]
  - MUSCLE SPASMS [None]
  - MYALGIA [None]
  - OSTEONECROSIS [None]
  - RED BLOOD CELL SEDIMENTATION RATE INCREASED [None]
